FAERS Safety Report 22522610 (Version 1)
Quarter: 2023Q2

REPORT INFORMATION
  Report Type: Report from Study
  Country: US (occurrence: US)
  Receive Date: 20230605
  Receipt Date: 20230605
  Transmission Date: 20230722
  Serious: No
  Sender: FDA-Public Use
  Company Number: US-002147023-NVSC2023US126120

PATIENT
  Sex: Female

DRUGS (1)
  1. KETOCONAZOLE [Suspect]
     Active Substance: KETOCONAZOLE
     Indication: Psoriasis
     Dosage: UNK
     Route: 065

REACTIONS (10)
  - Pain [Unknown]
  - Macule [Unknown]
  - Papule [Unknown]
  - Haemangioma [Unknown]
  - Drug ineffective [Unknown]
  - Erythema [Unknown]
  - Rash [Unknown]
  - Burning sensation [Unknown]
  - Skin exfoliation [Unknown]
  - Pruritus [Unknown]
